FAERS Safety Report 5109880-8 (Version None)
Quarter: 2006Q3

REPORT INFORMATION
  Report Type: 
  Country: None (occurrence: None)
  Receive Date: 20060919
  Receipt Date: 20060919
  Transmission Date: 20061208
  Serious: Yes (Other)
  Sender: FDA-Public Use
  Company Number: None

PATIENT
  Age: 51 Year
  Sex: Female
  Weight: 98.4306 kg

DRUGS (2)
  1. METFORMIN METFORMIN ER [Suspect]
     Indication: DIABETES MELLITUS
     Dosage: 1000 BID PO
     Route: 048
  2. GLUCOPHAGE [Suspect]
     Indication: DIABETES MELLITUS

REACTIONS (2)
  - DIARRHOEA [None]
  - PHARMACEUTICAL PRODUCT COMPLAINT [None]
